FAERS Safety Report 8292346-4 (Version None)
Quarter: 2012Q2

REPORT INFORMATION
  Report Type: 
  Country: None (occurrence: None)
  Receive Date: 20120417
  Receipt Date: 20110621
  Transmission Date: 20120825
  Serious: No
  Sender: FDA-Public Use
  Company Number: US-BAUSCH-2011BL004074

PATIENT
  Age: 53 Year
  Sex: Male

DRUGS (1)
  1. FLUNISOLIDE [Suspect]
     Indication: MULTIPLE ALLERGIES
     Route: 045
     Dates: start: 20110601, end: 20110601

REACTIONS (1)
  - INSTILLATION SITE PAIN [None]
